FAERS Safety Report 10586157 (Version 2)
Quarter: 2014Q4

REPORT INFORMATION
  Report Type: Spontaneous
  Country: US (occurrence: US)
  Receive Date: 20141116
  Receipt Date: 20141208
  Transmission Date: 20150529
  Serious: Yes (Hospitalization)
  Sender: FDA-Public Use
  Company Number: US-009507513-1411USA001475

PATIENT
  Age: 15 Year
  Sex: Male

DRUGS (3)
  1. INTRON A [Suspect]
     Active Substance: INTERFERON ALFA-2B
     Dosage: 2.5 MILLION IU, QD  BATCH#: ANOTHER SPECIFIC #
     Route: 058
     Dates: start: 20141022
  2. ZOMETA [Concomitant]
     Active Substance: ZOLEDRONIC ACID
     Route: 042
  3. INTRON A [Suspect]
     Active Substance: INTERFERON ALFA-2B
     Indication: GORHAM^S DISEASE
     Dosage: 2.5 MILLION IU, QD
     Route: 058
     Dates: start: 2005

REACTIONS (6)
  - Headache [Not Recovered/Not Resolved]
  - Infection [Unknown]
  - Off label use [Unknown]
  - Multiple fractures [Unknown]
  - Vomiting [Not Recovered/Not Resolved]
  - Product quality issue [Unknown]

NARRATIVE: CASE EVENT DATE: 2005
